FAERS Safety Report 16594852 (Version 1)
Quarter: 2019Q3

REPORT INFORMATION
  Report Type: Other
  Country: US (occurrence: US)
  Receive Date: 20190718
  Receipt Date: 20190718
  Transmission Date: 20191004
  Serious: No
  Sender: FDA-Public Use
  Company Number: US-SWEDISH ORPHAN BIOVITRUM-2019US0245

PATIENT
  Age: 43 Year
  Sex: Female

DRUGS (7)
  1. PROCARDIA [Concomitant]
     Active Substance: NIFEDIPINE
  2. LUNESTA [Concomitant]
     Active Substance: ESZOPICLONE
  3. COLCHICINE. [Concomitant]
     Active Substance: COLCHICINE
  4. ESTRADIOL. [Concomitant]
     Active Substance: ESTRADIOL
  5. WELLBUTRIN [Concomitant]
     Active Substance: BUPROPION HYDROCHLORIDE
  6. KINERET [Suspect]
     Active Substance: ANAKINRA
     Indication: PERICARDITIS
     Route: 058
     Dates: start: 20181122
  7. PREDNISONE. [Concomitant]
     Active Substance: PREDNISONE

REACTIONS (2)
  - Injection site bruising [Unknown]
  - Injection site pain [Unknown]

NARRATIVE: CASE EVENT DATE: 201812
